FAERS Safety Report 9849552 (Version 1)
Quarter: 2014Q1

REPORT INFORMATION
  Report Type: Spontaneous
  Country: US (occurrence: None)
  Receive Date: 20140124
  Receipt Date: 20140124
  Transmission Date: 20141002
  Serious: Yes (Other)
  Sender: FDA-Public Use
  Company Number: None

PATIENT
  Age: 89 Year
  Sex: Male
  Weight: 70.31 kg

DRUGS (14)
  1. TRAMA-DOL HCL [Suspect]
     Indication: BACK PAIN
     Route: 048
     Dates: start: 20131217, end: 20140102
  2. LISINOPRIL [Concomitant]
  3. LOVASTATIN [Concomitant]
  4. LYCOPEN [Concomitant]
  5. CALCIUM [Concomitant]
  6. FLOMAX [Concomitant]
  7. GLUCOSAMINE [Concomitant]
  8. ZINE [Concomitant]
  9. VITAMIN C [Concomitant]
  10. FISH OIL [Concomitant]
  11. GARLIC [Concomitant]
  12. FILIC ACID [Concomitant]
  13. ECHINACEA [Concomitant]
  14. FLAXSEED OIL [Concomitant]

REACTIONS (3)
  - Pruritus generalised [None]
  - Rash [None]
  - Tremor [None]
